FAERS Safety Report 7037695-2 (Version None)
Quarter: 2010Q4

REPORT INFORMATION
  Report Type: 
  Country: None (occurrence: None)
  Receive Date: 20101011
  Receipt Date: 20100930
  Transmission Date: 20110411
  Serious: Yes (Hospitalization, Other)
  Sender: FDA-Public Use
  Company Number: DK-JNJFOC-20100906912

PATIENT
  Sex: Male
  Weight: 87.7 kg

DRUGS (9)
  1. REMICADE [Suspect]
     Indication: COLITIS ULCERATIVE
     Route: 042
  2. HUMIRA [Suspect]
     Indication: COLITIS ULCERATIVE
  3. CEFUROXIME [Concomitant]
     Indication: ABSCESS
     Route: 042
  4. METRONIDAZOLE [Concomitant]
     Indication: ABSCESS
     Route: 042
  5. CIPROXIN IV [Concomitant]
     Indication: ABSCESS
     Route: 042
  6. CIPROXIN 500 [Concomitant]
     Indication: ABSCESS
     Route: 048
  7. TAZOCIN [Concomitant]
     Indication: INFECTION
     Route: 042
  8. TAZOCIN [Concomitant]
     Route: 042
  9. STEROIDS NOS [Concomitant]

REACTIONS (6)
  - ARTHRITIS REACTIVE [None]
  - INTESTINAL ANASTOMOSIS [None]
  - PELVIC ABSCESS [None]
  - RESECTION OF RECTUM [None]
  - SURGERY [None]
  - THERAPEUTIC RESPONSE DECREASED [None]
